FAERS Safety Report 7359989-3 (Version None)
Quarter: 2011Q1

REPORT INFORMATION
  Report Type: 
  Country: None (occurrence: None)
  Receive Date: 20110317
  Receipt Date: 20110304
  Transmission Date: 20110831
  Serious: Yes (Other)
  Sender: FDA-Public Use
  Company Number: US-MERCK-1103USA01788

PATIENT
  Age: 10 Year
  Sex: Female

DRUGS (5)
  1. PROVENTIL [Concomitant]
     Route: 065
  2. SINGULAIR [Suspect]
     Indication: ASTHMA
     Route: 048
     Dates: start: 20100401, end: 20110304
  3. NASONEX [Concomitant]
     Route: 065
  4. SINGULAIR [Suspect]
     Indication: RHINITIS
     Route: 048
     Dates: start: 20100401, end: 20110304
  5. CLARINEX [Concomitant]
     Route: 065

REACTIONS (2)
  - SUICIDAL IDEATION [None]
  - ANGER [None]
